FAERS Safety Report 7315541-7 (Version None)
Quarter: 2011Q1

REPORT INFORMATION
  Report Type: 
  Country: None (occurrence: None)
  Receive Date: 20110218
  Receipt Date: 20110218
  Transmission Date: 20110831
  Serious: Yes (Hospitalization)
  Sender: FDA-Public Use
  Company Number: None

PATIENT
  Age: 58 Year
  Sex: Female
  Weight: 106.5 kg

DRUGS (15)
  1. ASPIRIN [Suspect]
     Indication: CORONARY ARTERY DISEASE
     Dosage: 325MG DAILY PO CHRONIC
     Route: 048
  2. METOPROLOL [Concomitant]
  3. SYNTHROID [Concomitant]
  4. NOVOLOG [Concomitant]
  5. TRILIPIX [Concomitant]
  6. DIAZEPAM [Concomitant]
  7. CRESTOR [Concomitant]
  8. PLAVIX [Suspect]
     Indication: CORONARY ARTERY DISEASE
     Dosage: 75MG DAILY PO CHRONIC
     Route: 048
  9. SERTRALINE [Concomitant]
  10. VITAMIN TAB [Concomitant]
  11. COMBIVENT [Concomitant]
  12. NAPROXEN [Suspect]
     Indication: PAIN
     Dosage: 500MG BID PO CHRONIC
     Route: 048
  13. ISOSORBIDE DINITRATE [Concomitant]
  14. GLARGINE INSULIN [Concomitant]
  15. VIT D [Concomitant]

REACTIONS (7)
  - MELAENA [None]
  - GASTRIC ULCER [None]
  - FAECES DISCOLOURED [None]
  - ANAEMIA [None]
  - HELICOBACTER INFECTION [None]
  - ABDOMINAL PAIN [None]
  - HAEMORRHAGE [None]
